FAERS Safety Report 6346300-X (Version None)
Quarter: 2009Q3

REPORT INFORMATION
  Report Type: 
  Country: None (occurrence: None)
  Receive Date: 20090821
  Receipt Date: 20090611
  Transmission Date: 20100115
  Serious: No
  Sender: FDA-Public Use
  Company Number: 8047711

PATIENT
  Age: 17 Year
  Sex: Female

DRUGS (1)
  1. CIMZIA [Suspect]
     Dates: start: 20080701

REACTIONS (3)
  - ASTHENIA [None]
  - PALPITATIONS [None]
  - VISION BLURRED [None]
